FAERS Safety Report 11099737 (Version 2)
Quarter: 2015Q2

REPORT INFORMATION
  Report Type: Report from Study
  Country: US (occurrence: None)
  Receive Date: 20150507
  Receipt Date: 20150608
  Transmission Date: 20150821
  Serious: Yes (Death)
  Sender: FDA-Public Use
  Company Number: US-2015CRT000471

PATIENT
  Age: 34 Year
  Sex: Female
  Weight: 115.9 kg

DRUGS (18)
  1. SLOW-MAG (MAGNESIUM CHLORIDE) [Concomitant]
  2. COMPAZINE /00013302/ (PROCHLORPERAZINE EDISYLATE) [Concomitant]
  3. GLUCOTROL [Concomitant]
     Active Substance: GLIPIZIDE
  4. ULTRAM /00599202/ (TRAMADOL HYDROCHLORIDE) [Concomitant]
  5. ALDACTONE /00006201/ (SPIRONOLACTONE) [Concomitant]
  6. MIDAMOR (AMILORIDE HYDROCHLORIDE) [Concomitant]
  7. LEVOTHYROXINE [Concomitant]
     Active Substance: LEVOTHYROXINE
  8. LYSODREN (MITOTANE) [Concomitant]
  9. PRILOSEC [Concomitant]
     Active Substance: OMEPRAZOLE MAGNESIUM
  10. KLOR-CON (POTASSIUM CHLORIDE) [Concomitant]
  11. LASIX [Concomitant]
     Active Substance: FUROSEMIDE
  12. KORLYM [Suspect]
     Active Substance: MIFEPRISTONE
     Indication: CUSHING^S SYNDROME
     Route: 048
     Dates: start: 20150410
  13. KETOCONAZOLE. [Concomitant]
     Active Substance: KETOCONAZOLE
  14. TOPROL (METOPROLOL SUCCINATE) [Concomitant]
  15. BACTRIM [Concomitant]
     Active Substance: SULFAMETHOXAZOLE\TRIMETHOPRIM
  16. ATIVAN [Concomitant]
     Active Substance: LORAZEPAM
  17. SPIRONOLACTONE. [Concomitant]
     Active Substance: SPIRONOLACTONE
  18. ZOFRAN /00955301/ (ONDANSETRON) [Concomitant]

REACTIONS (3)
  - Malignant neoplasm progression [None]
  - Adrenocortical carcinoma [None]
  - Death [None]

NARRATIVE: CASE EVENT DATE: 2015
